FAERS Safety Report 9757318 (Version 1)
Quarter: 2013Q4

REPORT INFORMATION
  Report Type: Spontaneous
  Country: US (occurrence: US)
  Receive Date: 20131214
  Receipt Date: 20131214
  Transmission Date: 20140711
  Serious: No
  Sender: FDA-Public Use
  Company Number: US-009507513-1312USA005851

PATIENT
  Age: 19 Year
  Sex: Female

DRUGS (1)
  1. IMPLANON [Suspect]
     Indication: CONTRACEPTION
     Dosage: UNK, 1ROD FOR 3 YEARS
     Route: 059
     Dates: start: 201208

REACTIONS (5)
  - Decreased appetite [Unknown]
  - Haemorrhage [Unknown]
  - Abdominal discomfort [Unknown]
  - Hypoaesthesia [Unknown]
  - Dizziness [Unknown]
